FAERS Safety Report 6877589-6 (Version None)
Quarter: 2010Q3

REPORT INFORMATION
  Report Type: 
  Country: None (occurrence: None)
  Receive Date: 20100727
  Receipt Date: 20100218
  Transmission Date: 20110219
  Serious: No
  Sender: FDA-Public Use
  Company Number: US-ABBOTT-10P-163-0628380-00

PATIENT
  Sex: Female
  Weight: 52.21 kg

DRUGS (3)
  1. SYNTHROID [Suspect]
     Indication: THYROID NEOPLASM
     Route: 048
  2. LEVOTHYROXINE SODIUM [Suspect]
     Indication: THYROID NEOPLASM
     Dosage: UNKNOWN DOSE
     Dates: start: 19700101
  3. MULTIPLE UNKNOWN CONCOMITANTS [Concomitant]
     Indication: PRODUCT USED FOR UNKNOWN INDICATION

REACTIONS (1)
  - OSTEOPOROSIS [None]
